FAERS Safety Report 11758233 (Version 1)
Quarter: 2015Q4

REPORT INFORMATION
  Report Type: Spontaneous
  Country: FR (occurrence: FR)
  Receive Date: 20151120
  Receipt Date: 20151120
  Transmission Date: 20160304
  Serious: Yes (Other)
  Sender: FDA-Public Use
  Company Number: FR-SA-2015SA180981

PATIENT
  Age: 63 Year
  Sex: Female

DRUGS (6)
  1. LOVENOX [Suspect]
     Active Substance: ENOXAPARIN SODIUM
     Route: 065
     Dates: start: 20151012
  2. OROZAMUDOL [Concomitant]
     Active Substance: TRAMADOL
     Dosage: STRENGTH: 50 MG
     Route: 065
     Dates: start: 20151007
  3. LOVENOX [Suspect]
     Active Substance: ENOXAPARIN SODIUM
     Route: 065
     Dates: start: 20151007, end: 20151007
  4. EXACYL [Suspect]
     Active Substance: TRANEXAMIC ACID
     Route: 065
     Dates: start: 20151007, end: 20151007
  5. XARELTO [Suspect]
     Active Substance: RIVAROXABAN
     Route: 065
     Dates: start: 20151008, end: 20151011
  6. TARDYFERON [Concomitant]
     Active Substance: FERROUS SULFATE\FOLIC ACID
     Dosage: STRENGTH: 80 MG
     Route: 065
     Dates: start: 20151007

REACTIONS (2)
  - Deep vein thrombosis [Recovered/Resolved]
  - Drug ineffective [Unknown]

NARRATIVE: CASE EVENT DATE: 20151012
